FAERS Safety Report 8858799 (Version 1)
Quarter: 2012Q4

REPORT INFORMATION
  Report Type: Spontaneous
  Country: US (occurrence: None)
  Receive Date: 20121023
  Receipt Date: 20121023
  Transmission Date: 20130627
  Serious: Yes (Hospitalization, Disabling, Other)
  Sender: FDA-Public Use
  Company Number: None

PATIENT
  Age: 50 Year
  Sex: Female
  Weight: 99.79 kg

DRUGS (1)
  1. BUPROPION [Suspect]
     Indication: DEPRESSION
     Dosage: 1 tablet twice a day  twice a day  po
     Route: 048
     Dates: start: 20070828, end: 20121022

REACTIONS (3)
  - Headache [None]
  - Emotional disorder [None]
  - Aggression [None]
